FAERS Safety Report 15347358 (Version 1)
Quarter: 2018Q3

REPORT INFORMATION
  Report Type: Spontaneous
  Country: US (occurrence: US)
  Receive Date: 20180829
  Receipt Date: 20180829
  Transmission Date: 20181010
  Serious: Yes (Disabling)
  Sender: FDA-Public Use
  Company Number: None

PATIENT
  Age: 39 Year
  Sex: Male
  Weight: 92.25 kg

DRUGS (6)
  1. DOXYCYLINE [Concomitant]
     Active Substance: DOXYCYCLINE
  2. VITAMIN E [Concomitant]
     Active Substance: .ALPHA.-TOCOPHEROL
  3. COLLAGEN [Concomitant]
     Active Substance: COLLAGEN
  4. MAGNESIUM [Concomitant]
     Active Substance: MAGNESIUM
  5. TURMERIC [Concomitant]
     Active Substance: HERBALS\TURMERIC
  6. CIPROFLAXOCIN [Suspect]
     Active Substance: CIPROFLOXACIN HYDROCHLORIDE
     Indication: EPIDIDYMITIS
     Dosage: ?          QUANTITY:1 TABLET(S);?
     Route: 048
     Dates: start: 20180820, end: 20180821

REACTIONS (6)
  - Anxiety [None]
  - Pain in extremity [None]
  - Myalgia [None]
  - Tendon pain [None]
  - Heart rate increased [None]
  - Plantar fasciitis [None]

NARRATIVE: CASE EVENT DATE: 20180822
